FAERS Safety Report 19653988 (Version 1)
Quarter: 2021Q3

REPORT INFORMATION
  Report Type: Spontaneous
  Country: US (occurrence: US)
  Receive Date: 20210803
  Receipt Date: 20210803
  Transmission Date: 20211014
  Serious: Yes (Other)
  Sender: FDA-Public Use
  Company Number: US-ENDO PHARMACEUTICALS INC-2021-009809

PATIENT
  Age: 41 Year
  Sex: Male

DRUGS (2)
  1. RANITIDINE. [Suspect]
     Active Substance: RANITIDINE
     Indication: GASTROOESOPHAGEAL REFLUX DISEASE
     Dosage: 150 MG, DAILY
     Route: 065
     Dates: start: 201006, end: 201912
  2. RANITIDINE HYDROCHLORIDE. [Suspect]
     Active Substance: RANITIDINE HYDROCHLORIDE
     Indication: GASTROOESOPHAGEAL REFLUX DISEASE
     Dosage: 150 MG, DAILY
     Route: 065
     Dates: start: 201006, end: 201912

REACTIONS (4)
  - Lung carcinoma cell type unspecified stage I [Not Recovered/Not Resolved]
  - Oesophageal carcinoma [Not Recovered/Not Resolved]
  - Leukaemia [Not Recovered/Not Resolved]
  - Gastric cancer stage I [Not Recovered/Not Resolved]

NARRATIVE: CASE EVENT DATE: 20180901
